FAERS Safety Report 14790292 (Version 1)
Quarter: 2018Q2

REPORT INFORMATION
  Report Type: Spontaneous
  Country: US (occurrence: US)
  Receive Date: 20180423
  Receipt Date: 20180423
  Transmission Date: 20180711
  Serious: No
  Sender: FDA-Public Use
  Company Number: US-BAUSCH-BL-2017-028053

PATIENT
  Age: 61 Year
  Sex: Male

DRUGS (2)
  1. OMEPRAZOLE. [Suspect]
     Active Substance: OMEPRAZOLE
     Indication: GASTROOESOPHAGEAL REFLUX DISEASE
     Route: 065
  2. NITROGLYCERIN TDS 0.4 MG/HR [Suspect]
     Active Substance: NITROGLYCERIN
     Indication: EPICONDYLITIS
     Dosage: INSTRUCTED TO CUT THE 0.4 MG/HR PATCHES IN QUARTERS
     Route: 065
     Dates: start: 201708

REACTIONS (3)
  - Headache [Not Recovered/Not Resolved]
  - Drug prescribing error [Unknown]
  - Wrong technique in device usage process [None]

NARRATIVE: CASE EVENT DATE: 201708
